FAERS Safety Report 6404641-1 (Version None)
Quarter: 2009Q4

REPORT INFORMATION
  Report Type: 
  Country: None (occurrence: None)
  Receive Date: 20091016
  Receipt Date: 20091006
  Transmission Date: 20100525
  Serious: Yes (Death, Hospitalization, Other)
  Sender: FDA-Public Use
  Company Number: FR-ELI_LILLY_AND_COMPANY-FR200910000419

PATIENT
  Age: 58 Year
  Sex: Female

DRUGS (2)
  1. ZYPREXA [Suspect]
     Indication: BIPOLAR I DISORDER
     Dosage: 20 MG, DAILY (1/D)
     Route: 048
  2. TERCIAN [Concomitant]
     Indication: BIPOLAR I DISORDER
     Dosage: 150 MG, DAILY (1/D)
     Route: 048

REACTIONS (3)
  - HOSPITALISATION [None]
  - ILEUS [None]
  - PULMONARY EMBOLISM [None]
